FAERS Safety Report 4526189-1 (Version None)
Quarter: 2004Q4

REPORT INFORMATION
  Report Type: 
  Country: None (occurrence: None)
  Receive Date: 20041214
  Receipt Date: 20040507
  Transmission Date: 20050328
  Serious: Yes (Other)
  Sender: FDA-Public Use
  Company Number: 200411605JP

PATIENT
  Age: 39 Year
  Sex: Female
  Weight: 57 kg

DRUGS (5)
  1. ARAVA [Suspect]
     Indication: RHEUMATOID ARTHRITIS
     Route: 048
     Dates: start: 20040303, end: 20041101
  2. THYRADIN S [Concomitant]
     Indication: AUTOIMMUNE THYROIDITIS
     Route: 048
  3. LOXONIN [Concomitant]
     Indication: ARTHRALGIA
     Route: 048
  4. APLACE [Concomitant]
     Indication: GASTRITIS
     Route: 048
  5. METHOTREXATE [Concomitant]
     Dosage: DOSE: 4MG/WEEK
     Route: 048
     Dates: start: 19990713, end: 20040302

REACTIONS (8)
  - ALANINE AMINOTRANSFERASE INCREASED [None]
  - ASPARTATE AMINOTRANSFERASE INCREASED [None]
  - BLOOD ALBUMIN INCREASED [None]
  - BLOOD BILIRUBIN INCREASED [None]
  - BLOOD LACTATE DEHYDROGENASE INCREASED [None]
  - PRURITUS [None]
  - RED BLOOD CELL COUNT DECREASED [None]
  - RED BLOOD CELL SEDIMENTATION RATE INCREASED [None]
